FAERS Safety Report 9364064 (Version 1)
Quarter: 2013Q2

REPORT INFORMATION
  Report Type: Spontaneous
  Country: NL (occurrence: None)
  Receive Date: 20130620
  Receipt Date: 20130620
  Transmission Date: 20140414
  Serious: Yes (Other)
  Sender: FDA-Public Use
  Company Number: AG-2013-014092

PATIENT
  Age: 30 Year
  Sex: Female

DRUGS (1)
  1. THIOGUANINE [Suspect]
     Indication: COLITIS ULCERATIVE
     Dosage: APPROXIMATELY 0.3 MG/KG DAILY
     Route: 048

REACTIONS (2)
  - Fatigue [None]
  - Treatment failure [None]
